FAERS Safety Report 21857071 (Version 2)
Quarter: 2023Q1

REPORT INFORMATION
  Report Type: Spontaneous
  Country: US (occurrence: US)
  Receive Date: 20230113
  Receipt Date: 20230224
  Transmission Date: 20230418
  Serious: No
  Sender: FDA-Public Use
  Company Number: US-JNJFOC-20230122279

PATIENT
  Sex: Female

DRUGS (1)
  1. WOMENS ROGAINE UNSCENTED [Suspect]
     Active Substance: MINOXIDIL
     Indication: Alopecia
     Dosage: 1 PUMP ONCE A DAY
     Route: 061

REACTIONS (3)
  - Hair texture abnormal [Not Recovered/Not Resolved]
  - Incorrect dose administered [Unknown]
  - Product physical consistency issue [Unknown]
